FAERS Safety Report 12953665 (Version 3)
Quarter: 2016Q4

REPORT INFORMATION
  Report Type: Report from Study
  Country: None (occurrence: JP)
  Receive Date: 20161117
  Receipt Date: 20161206
  Transmission Date: 20170207
  Serious: Yes (Other)
  Sender: FDA-Public Use
  Company Number: JP-ABBVIE-16P-087-1782016-00

PATIENT
  Sex: Male

DRUGS (2)
  1. URSODEOXYCHOLIC ACID [Concomitant]
     Active Substance: URSODIOL
     Indication: PRODUCT USED FOR UNKNOWN INDICATION
     Route: 048
  2. VIEKIRAX [Suspect]
     Active Substance: OMBITASVIR\PARITAPREVIR\RITONAVIR
     Indication: HEPATITIS C
     Route: 048
     Dates: end: 20161025

REACTIONS (3)
  - Blood glucose increased [Unknown]
  - Anxiety [Unknown]
  - Computerised tomogram liver abnormal [Unknown]

NARRATIVE: CASE EVENT DATE: 201611
